FAERS Safety Report 21644587 (Version 1)
Quarter: 2022Q4

REPORT INFORMATION
  Report Type: Report from Study
  Country: US (occurrence: US)
  Receive Date: 20221125
  Receipt Date: 20221125
  Transmission Date: 20230112
  Serious: Yes (Hospitalization)
  Sender: FDA-Public Use
  Company Number: US-ABBVIE-22K-163-4520446-00

PATIENT
  Sex: Male

DRUGS (1)
  1. HUMIRA [Suspect]
     Active Substance: ADALIMUMAB
     Indication: Crohn^s disease
     Dosage: CITRATE FREE?STRENGTH: 40 MG
     Route: 058

REACTIONS (3)
  - Nephrolithiasis [Recovering/Resolving]
  - Lung disorder [Unknown]
  - COVID-19 [Recovering/Resolving]
